FAERS Safety Report 7637738-9 (Version None)
Quarter: 2011Q3

REPORT INFORMATION
  Report Type: 
  Country: None (occurrence: None)
  Receive Date: 20110727
  Receipt Date: 20110719
  Transmission Date: 20111222
  Serious: Yes (Death)
  Sender: FDA-Public Use
  Company Number: NL-AMGEN-NLDSP2011036903

PATIENT
  Age: 61 Year
  Sex: Female
  Weight: 60 kg

DRUGS (5)
  1. FOLIC ACID [Concomitant]
     Dosage: 5 MG, WEEKLY
     Dates: start: 20010407
  2. METHOTREXATE SODIUM [Suspect]
     Indication: RHEUMATOID ARTHRITIS
     Dosage: 7.5 MG, WEEKLY
     Dates: start: 20000101
  3. ENBREL [Suspect]
     Indication: RHEUMATOID ARTHRITIS
     Dosage: 25 MG, WEEKLY
     Dates: start: 20050625, end: 20110309
  4. LOSEC                              /00661201/ [Concomitant]
     Dosage: 20 MG, 1X/DAY
     Dates: start: 20010117
  5. CELEBREX [Concomitant]
     Indication: ARTHRITIS
     Dosage: 200 MG, 1X/DAY
     Dates: start: 20010407

REACTIONS (2)
  - DEATH [None]
  - GALLBLADDER CANCER [None]
